FAERS Safety Report 26109815 (Version 1)
Quarter: 2025Q4

REPORT INFORMATION
  Report Type: Spontaneous
  Country: IN (occurrence: IN)
  Receive Date: 20251201
  Receipt Date: 20251201
  Transmission Date: 20260119
  Serious: Yes (Other)
  Sender: PFIZER
  Company Number: IN-PFIZER INC-PV202500071762

PATIENT
  Age: 54 Year
  Sex: Female
  Weight: 53.7 kg

DRUGS (3)
  1. LORLATINIB [Suspect]
     Active Substance: LORLATINIB
     Indication: Lung adenocarcinoma
     Dosage: 100 MG, 1X/DAY
     Route: 048
     Dates: start: 20250314
  2. VEBA PLUS [Concomitant]
     Dosage: 1 TAB OD
  3. LOSAR H [Concomitant]
     Dosage: 50 MG, 1X/DAY

REACTIONS (4)
  - Blood pressure systolic increased [Unknown]
  - Weight increased [Unknown]
  - Laboratory test abnormal [Unknown]
  - Haemoglobin decreased [Unknown]
